FAERS Safety Report 8087845-4 (Version None)
Quarter: 2012Q1

REPORT INFORMATION
  Report Type: 
  Country: None (occurrence: None)
  Receive Date: 20120128
  Receipt Date: 20110411
  Transmission Date: 20120608
  Serious: No
  Sender: FDA-Public Use
  Company Number: US-ABBOTT-11P-163-0718047-00

PATIENT
  Age: 30 Year
  Sex: Female

DRUGS (1)
  1. HUMIRA [Suspect]
     Indication: PSORIASIS
     Dates: start: 20080901, end: 20100915

REACTIONS (6)
  - SEASONAL ALLERGY [None]
  - DRY EYE [None]
  - SNEEZING [None]
  - UPPER-AIRWAY COUGH SYNDROME [None]
  - THROAT IRRITATION [None]
  - ANXIETY [None]
